FAERS Safety Report 5080783-0 (Version None)
Quarter: 2006Q3

REPORT INFORMATION
  Report Type: 
  Country: None (occurrence: None)
  Receive Date: 20060809
  Receipt Date: 20060725
  Transmission Date: 20061208
  Serious: Yes (Hospitalization)
  Sender: FDA-Public Use
  Company Number: 227314

PATIENT
  Age: 30 Year
  Sex: Male

DRUGS (11)
  1. AVASTIN [Suspect]
     Indication: COLON CANCER
     Dosage: 769 MG, Q2W, INTRAVENOUS
     Route: 042
     Dates: start: 20060412
  2. AVASTIN [Suspect]
  3. AVASTIN [Suspect]
  4. OXALIPLATIN [Suspect]
     Indication: COLON CANCER
     Dosage: 185 MG, Q2W, INTRAVENOUS
     Route: 042
     Dates: start: 20051012
  5. OXALIPLATIN [Suspect]
     Dosage: 872 MG, Q2W, INTRAVENOUS
     Route: 042
  6. FLUOROURACIL [Suspect]
     Indication: COLON CANCER
     Dosage: 872 MG, Q2W, INTRAVENOUS
     Route: 042
     Dates: start: 20051012
  7. LEUCOVORIN CALCIUM [Suspect]
     Indication: COLON CANCER
     Dosage: 436 MG, Q2W, INTRAVENOUS
     Route: 042
     Dates: start: 20051012
  8. IRON (IRON NOS) [Concomitant]
  9. MULTIVITAMIN NOS (MULTIVITAMINS NOS) [Concomitant]
  10. NITIDINE (RANITIDINE) [Concomitant]
  11. FRAGMIN [Concomitant]

REACTIONS (1)
  - PYREXIA [None]
